FAERS Safety Report 19772210 (Version 1)
Quarter: 2021Q3

REPORT INFORMATION
  Report Type: Spontaneous
  Country: US (occurrence: US)
  Receive Date: 20210827
  Receipt Date: 20210827
  Transmission Date: 20211014
  Serious: No
  Sender: FDA-Public Use
  Company Number: None

PATIENT
  Sex: Male

DRUGS (1)
  1. INLYTA [Suspect]
     Active Substance: AXITINIB
     Route: 048
     Dates: start: 20210126

REACTIONS (7)
  - Pollakiuria [None]
  - Therapy interrupted [None]
  - Rash [None]
  - Dysuria [None]
  - Thrombosis [None]
  - Burning sensation [None]
  - Haemorrhage [None]
